FAERS Safety Report 8438512-6 (Version None)
Quarter: 2012Q2

REPORT INFORMATION
  Report Type: 
  Country: None (occurrence: None)
  Receive Date: 20120615
  Receipt Date: 20120611
  Transmission Date: 20120825
  Serious: Yes (Hospitalization, Other)
  Sender: FDA-Public Use
  Company Number: US-BIOGENIDEC-2010BI042870

PATIENT
  Sex: Male
  Weight: 90 kg

DRUGS (3)
  1. AVONEX [Suspect]
     Indication: MULTIPLE SCLEROSIS
     Route: 030
     Dates: start: 20030601
  2. AVONEX [Suspect]
     Route: 030
  3. AVONEX [Suspect]
     Route: 030

REACTIONS (12)
  - GASTRIC DISORDER [None]
  - DEPRESSION [None]
  - BLOOD CHOLESTEROL INCREASED [None]
  - NERVOUSNESS [None]
  - MUSCLE SPASMS [None]
  - VOMITING [None]
  - HYPERTENSION [None]
  - HEADACHE [None]
  - COLONIC POLYP [None]
  - CONVULSION [None]
  - TREMOR [None]
  - PAIN IN EXTREMITY [None]
